FAERS Safety Report 7441381-4 (Version None)
Quarter: 2011Q2

REPORT INFORMATION
  Report Type: 
  Country: None (occurrence: None)
  Receive Date: 20110418
  Receipt Date: 20110221
  Transmission Date: 20111010
  Serious: Yes (Hospitalization)
  Sender: FDA-Public Use
  Company Number: WAES 1102USA02390

PATIENT
  Age: 55 Year
  Sex: Male
  Weight: 114.76 kg

DRUGS (7)
  1. VICONDIN [Concomitant]
  2. ATAZANAVIR [Suspect]
     Indication: HIV INFECTION
     Dosage: 300 MG/DAILY/PO
     Route: 048
  3. COCAINE UNK [Suspect]
  4. ISENTRESS [Suspect]
     Indication: HIV INFECTION
     Dosage: 400 MG/DAILY/PO
     Route: 048
  5. IBUPROFEN [Concomitant]
  6. LISINOPRIL [Concomitant]
  7. TESTOSTERONE [Concomitant]

REACTIONS (2)
  - SUICIDAL IDEATION [None]
  - PARANOIA [None]
